FAERS Safety Report 7478143-8 (Version None)
Quarter: 2011Q2

REPORT INFORMATION
  Report Type: 
  Country: None (occurrence: None)
  Receive Date: 20110513
  Receipt Date: 20110429
  Transmission Date: 20111010
  Serious: Yes (Other)
  Sender: FDA-Public Use
  Company Number: CA-JNJFOC-20100705678

PATIENT
  Sex: Male
  Weight: 110 kg

DRUGS (5)
  1. IMURAN [Concomitant]
     Dosage: DOSE WAS INCREASED FROM 1/2 TABLET TO 1 TABLET.
  2. REMICADE [Suspect]
     Route: 042
  3. IMURAN [Concomitant]
     Dosage: DOSE WAS INCREASED FROM 1/2 TABLET TO 1 TABLET.
  4. REMICADE [Suspect]
     Dosage: DOSAGE WAS INCREASED BY DECREASING FREQUENCY BETWEEN INFUSIONS
     Route: 042
  5. REMICADE [Suspect]
     Indication: CROHN'S DISEASE
     Dosage: X 52
     Route: 042

REACTIONS (3)
  - FISTULA [None]
  - CROHN'S DISEASE [None]
  - FREQUENT BOWEL MOVEMENTS [None]
